FAERS Safety Report 9374903 (Version 1)
Quarter: 2013Q2

REPORT INFORMATION
  Report Type: Report from Study
  Country: CN (occurrence: CN)
  Receive Date: 20130628
  Receipt Date: 20130628
  Transmission Date: 20140414
  Serious: Yes (Death, Life-Threatening, Hospitalization)
  Sender: FDA-Public Use
  Company Number: CN-SANOFI-AVENTIS-2013SA062153

PATIENT
  Age: 73 Year
  Sex: Male

DRUGS (7)
  1. ENOXAPARIN SODIUM [Suspect]
     Indication: THROMBOSIS PROPHYLAXIS
     Route: 058
     Dates: start: 20111204, end: 20111208
  2. BLINDED THERAPY [Suspect]
     Indication: THROMBOSIS PROPHYLAXIS
     Route: 048
     Dates: start: 20111204, end: 20111207
  3. ASPIRIN [Concomitant]
     Indication: MYOCARDIAL INFARCTION
     Route: 048
     Dates: start: 2004, end: 20111201
  4. LEVOFLOXACIN [Concomitant]
     Indication: LUNG INFECTION
     Route: 048
     Dates: start: 20111201, end: 20111204
  5. CEFOPERAZONE/SULBACTAM [Concomitant]
     Indication: LUNG INFECTION
     Route: 048
     Dates: start: 20111201, end: 20111204
  6. NIFEDIPINE [Concomitant]
     Indication: HYPERTENSION
     Route: 048
     Dates: start: 20111201, end: 20111208
  7. DALTEPARIN SODIUM [Concomitant]
     Indication: PULMONARY EMBOLISM
     Route: 042
     Dates: start: 20111203, end: 20111203

REACTIONS (3)
  - Cardiac arrest [Fatal]
  - Intra-abdominal haematoma [Fatal]
  - Altered state of consciousness [Fatal]
